FAERS Safety Report 25096908 (Version 1)
Quarter: 2025Q1

REPORT INFORMATION
  Report Type: Spontaneous
  Country: SG (occurrence: SG)
  Receive Date: 20250319
  Receipt Date: 20250319
  Transmission Date: 20250409
  Serious: Yes (Hospitalization, Other)
  Sender: DAITO PHARMACEUTICALS
  Company Number: SG-Daito Pharmaceutical Co., Ltd.-2173277

PATIENT
  Age: 83 Year
  Sex: Female

DRUGS (2)
  1. METHOTREXATE SODIUM [Suspect]
     Active Substance: METHOTREXATE SODIUM
     Indication: Lividity
  2. METHOTREXATE SODIUM [Suspect]
     Active Substance: METHOTREXATE SODIUM
     Indication: Angiopathy

REACTIONS (6)
  - Ulcer haemorrhage [Unknown]
  - Stomatitis [Recovered/Resolved]
  - Blister [Unknown]
  - Herpes simplex [Unknown]
  - Acute kidney injury [Unknown]
  - Pancytopenia [Recovered/Resolved]
